FAERS Safety Report 6615900-1 (Version None)
Quarter: 2010Q1

REPORT INFORMATION
  Report Type: 
  Country: None (occurrence: None)
  Receive Date: 20100305
  Receipt Date: 20100226
  Transmission Date: 20100710
  Serious: Yes (Hospitalization)
  Sender: FDA-Public Use
  Company Number: DE-ELI_LILLY_AND_COMPANY-DE201002004547

PATIENT
  Sex: Male

DRUGS (6)
  1. BYETTA [Suspect]
     Indication: DIABETES MELLITUS
     Dosage: 5 UG, 2/D
     Route: 058
     Dates: start: 20090115, end: 20090908
  2. AMLODIPINE [Concomitant]
     Dosage: 10 MG, 2/D
     Route: 065
  3. RAMIPRIL [Concomitant]
     Dosage: 10 MG, DAILY (1/D)
     Route: 065
  4. METFORMIN [Concomitant]
     Dosage: 500 MG, DAILY (1/D)
     Route: 065
  5. PRAVASTATIN [Concomitant]
     Dosage: 40 MG, DAILY (1/D)
     Route: 065
  6. ASPIRIN [Concomitant]
     Dosage: 100 MG, DAILY (1/D)
     Route: 065

REACTIONS (5)
  - CONSTIPATION [None]
  - DUODENAL ULCER [None]
  - FAECALOMA [None]
  - NAUSEA [None]
  - PANCREATIC CARCINOMA [None]
